FAERS Safety Report 5992517-3 (Version None)
Quarter: 2008Q4

REPORT INFORMATION
  Report Type: 
  Country: None (occurrence: None)
  Receive Date: 20081211
  Receipt Date: 20080520
  Transmission Date: 20090506
  Serious: No
  Sender: FDA-Public Use
  Company Number: US-AMGEN-KDL275004

PATIENT
  Sex: Male

DRUGS (2)
  1. ENBREL [Suspect]
     Indication: PSORIASIS
     Route: 058
     Dates: start: 20070627
  2. METHOTREXATE [Concomitant]
     Dates: start: 20010101

REACTIONS (9)
  - ASTHENIA [None]
  - COUGH [None]
  - FATIGUE [None]
  - LIVER DISORDER [None]
  - MALAISE [None]
  - PAIN [None]
  - PAROSMIA [None]
  - PYREXIA [None]
  - VOMITING [None]
